FAERS Safety Report 5368058-3 (Version None)
Quarter: 2007Q2

REPORT INFORMATION
  Report Type: 
  Country: None (occurrence: None)
  Receive Date: 20070622
  Receipt Date: 20070612
  Transmission Date: 20071010
  Serious: Yes (Hospitalization, Other)
  Sender: FDA-Public Use
  Company Number: US-PFIZER INC-2007049053

PATIENT
  Sex: Male
  Weight: 59.09 kg

DRUGS (8)
  1. LIPITOR [Suspect]
     Indication: BLOOD TRIGLYCERIDES
     Dates: start: 20040509, end: 20070611
  2. LIPITOR [Suspect]
     Indication: BLOOD CHOLESTEROL
  3. TRICOR [Concomitant]
  4. EVOXAC [Concomitant]
  5. VITAMIN B COMPLEX CAP [Concomitant]
  6. CENTRUM [Concomitant]
  7. CALCIUM CHLORIDE [Concomitant]
  8. COREG [Concomitant]

REACTIONS (6)
  - BLOOD SODIUM DECREASED [None]
  - DIABETES MELLITUS [None]
  - ELECTROLYTE IMBALANCE [None]
  - FALL [None]
  - GASTROINTESTINAL DISORDER [None]
  - PELVIC FRACTURE [None]
